FAERS Safety Report 8573231-7 (Version None)
Quarter: 2012Q3

REPORT INFORMATION
  Report Type: 
  Country: None (occurrence: None)
  Receive Date: 20120806
  Receipt Date: 20120731
  Transmission Date: 20120928
  Serious: Yes (Other)
  Sender: FDA-Public Use
  Company Number: SG-PFIZER INC-2012185865

PATIENT
  Age: 64 Year
  Sex: Female

DRUGS (1)
  1. SULFASALAZINE [Suspect]

REACTIONS (2)
  - DRUG ERUPTION [None]
  - RASH [None]
